FAERS Safety Report 9451689 (Version 2)
Quarter: 2014Q2

REPORT INFORMATION
  Report Type: Report from Study
  Country: FR (occurrence: FR)
  Receive Date: 20130812
  Receipt Date: 20140513
  Transmission Date: 20141212
  Serious: Yes (Hospitalization)
  Sender: FDA-Public Use
  Company Number: FR-ROCHE-1258209

PATIENT
  Sex: Male
  Weight: 85 kg

DRUGS (5)
  1. PEG-INTERFERON ALFA 2A [Suspect]
     Indication: CHRONIC HEPATITIS C
     Route: 058
     Dates: start: 20130429, end: 20140319
  2. RIBAVIRIN [Suspect]
     Indication: CHRONIC HEPATITIS C
     Route: 065
     Dates: start: 20130429, end: 20130601
  3. RIBAVIRIN [Suspect]
     Route: 065
     Dates: start: 20130602, end: 20131003
  4. RIBAVIRIN [Suspect]
     Route: 065
     Dates: start: 20131004, end: 20140319
  5. INCIVO [Suspect]
     Indication: CHRONIC HEPATITIS C
     Dosage: 375
     Route: 065
     Dates: start: 20130610, end: 20130905

REACTIONS (2)
  - Anaemia [Recovered/Resolved]
  - General physical condition abnormal [Recovering/Resolving]
